FAERS Safety Report 7611523-6 (Version None)
Quarter: 2011Q3

REPORT INFORMATION
  Report Type: 
  Country: None (occurrence: None)
  Receive Date: 20110715
  Receipt Date: 20110630
  Transmission Date: 20111222
  Serious: Yes (Hospitalization)
  Sender: FDA-Public Use
  Company Number: KW-WATSON-2011-10342

PATIENT
  Age: 36 Year
  Sex: Male

DRUGS (1)
  1. METFORMIN HCL [Suspect]
     Indication: OVERDOSE
     Route: 048

REACTIONS (8)
  - CARDIAC ARREST [None]
  - HAEMOLYTIC ANAEMIA [None]
  - VOMITING [None]
  - LACTIC ACIDOSIS [None]
  - ABDOMINAL PAIN [None]
  - PANCREATITIS [None]
  - POISONING [None]
  - TACHYPNOEA [None]
